FAERS Safety Report 7793583-5 (Version None)
Quarter: 2011Q4

REPORT INFORMATION
  Report Type: 
  Country: None (occurrence: None)
  Receive Date: 20111003
  Receipt Date: 20110928
  Transmission Date: 20120403
  Serious: Yes (Other)
  Sender: FDA-Public Use
  Company Number: JP-PFIZER INC-2011155080

PATIENT
  Age: 52 Year
  Sex: Male
  Weight: 70 kg

DRUGS (4)
  1. DIAZEPAM [Concomitant]
     Indication: ADJUSTMENT DISORDER
     Dosage: 4 MG, UNK
     Route: 048
  2. DEPAS [Concomitant]
     Indication: ADJUSTMENT DISORDER
     Dosage: 0.5 MG, AS NEEDED
  3. DOGMATYL [Concomitant]
     Indication: ADJUSTMENT DISORDER
     Dosage: 100 MG, UNK
  4. VARENICLINE TARTRATE [Suspect]
     Indication: SMOKING CESSATION THERAPY
     Dosage: 0.5 MG, 1X/DAY
     Route: 048
     Dates: start: 20110706, end: 20110706

REACTIONS (4)
  - FEELING ABNORMAL [None]
  - DIARRHOEA [None]
  - MALAISE [None]
  - ABDOMINAL PAIN [None]
